FAERS Safety Report 16214653 (Version 1)
Quarter: 2019Q2

REPORT INFORMATION
  Report Type: Spontaneous
  Country: US (occurrence: US)
  Receive Date: 20190418
  Receipt Date: 20190418
  Transmission Date: 20190711
  Serious: Yes (Other)
  Sender: FDA-Public Use
  Company Number: US-GILEAD-2019-0402833

PATIENT
  Sex: Male

DRUGS (2)
  1. VIREAD [Suspect]
     Active Substance: TENOFOVIR DISOPROXIL FUMARATE
     Indication: HIV INFECTION
     Dosage: UNK
     Route: 048
     Dates: start: 2001, end: 2004
  2. TRUVADA [Suspect]
     Active Substance: EMTRICITABINE\TENOFOVIR DISOPROXIL FUMARATE
     Indication: HIV INFECTION
     Route: 048

REACTIONS (10)
  - Osteomalacia [Unknown]
  - Emotional distress [Unknown]
  - Anxiety [Unknown]
  - Osteonecrosis [Unknown]
  - Economic problem [Unknown]
  - Bone density decreased [Unknown]
  - Tooth loss [Unknown]
  - Bone density abnormal [Unknown]
  - Anhedonia [Unknown]
  - Pain [Unknown]
